FAERS Safety Report 7572976-5 (Version None)
Quarter: 2011Q2

REPORT INFORMATION
  Report Type: 
  Country: None (occurrence: None)
  Receive Date: 20110627
  Receipt Date: 20110620
  Transmission Date: 20111010
  Serious: No
  Sender: FDA-Public Use
  Company Number: SE-JNJFOC-20110609275

PATIENT
  Age: 49 Year
  Sex: Female

DRUGS (3)
  1. ZOFRAN [Concomitant]
     Route: 065
  2. METADON [Concomitant]
     Route: 065
  3. DURAGESIC-100 [Suspect]
     Indication: PAIN

REACTIONS (4)
  - PRODUCT QUALITY ISSUE [None]
  - INAPPROPRIATE SCHEDULE OF DRUG ADMINISTRATION [None]
  - HYPERHIDROSIS [None]
  - DRUG INEFFECTIVE [None]
